FAERS Safety Report 11190358 (Version 2)
Quarter: 2015Q2

REPORT INFORMATION
  Report Type: Report from Study
  Country: BR (occurrence: BR)
  Receive Date: 20150615
  Receipt Date: 20150616
  Transmission Date: 20150821
  Serious: Yes (Hospitalization, Other)
  Sender: FDA-Public Use
  Company Number: BR-ABBVIE-15K-020-1381642-00

PATIENT
  Age: 50 Year
  Sex: Male
  Weight: 73 kg

DRUGS (1)
  1. HUMIRA [Suspect]
     Active Substance: ADALIMUMAB
     Indication: PSORIATIC ARTHROPATHY
     Route: 058
     Dates: start: 20130101, end: 20150101

REACTIONS (15)
  - Seizure [Recovered/Resolved]
  - Brain neoplasm [Unknown]
  - Blood potassium decreased [Unknown]
  - Pain [Unknown]
  - Weight decreased [Recovering/Resolving]
  - Seizure [Unknown]
  - Adenoiditis [Unknown]
  - Granuloma [Unknown]
  - Oropharyngeal pain [Recovering/Resolving]
  - Hypophagia [Recovering/Resolving]
  - Immunodeficiency [Recovering/Resolving]
  - Hypersensitivity [Unknown]
  - Pyrexia [Recovering/Resolving]
  - Seizure [Recovered/Resolved]
  - Tuberculosis [Unknown]

NARRATIVE: CASE EVENT DATE: 20150326
